FAERS Safety Report 16441893 (Version 1)
Quarter: 2019Q2

REPORT INFORMATION
  Report Type: Report from Study
  Country: None (occurrence: US)
  Receive Date: 20190617
  Receipt Date: 20190617
  Transmission Date: 20190711
  Serious: No
  Sender: FDA-Public Use
  Company Number: US-US WORLDMEDS, LLC-USW201809-001376

PATIENT
  Age: 77 Year
  Sex: Female
  Weight: 47.62 kg

DRUGS (4)
  1. APOKYN [Suspect]
     Active Substance: APOMORPHINE HYDROCHLORIDE
     Indication: PARKINSON^S DISEASE
     Route: 058
     Dates: start: 20180914
  2. ALBUTEROL. [Concomitant]
     Active Substance: ALBUTEROL
  3. SINEMET [Concomitant]
     Active Substance: CARBIDOPA\LEVODOPA
     Dosage: 25/100 1.5 PILLS Q2 HRS DEPENDING ON ACTIVITY
  4. RYTARY [Concomitant]
     Active Substance: CARBIDOPA\LEVODOPA
     Dosage: 954 PILLS PLUS HALF  Q 2.5 HRS NO MORE THAN 4 PILLS A DAY

REACTIONS (3)
  - Feeling abnormal [Unknown]
  - Somnolence [Unknown]
  - Blood pressure decreased [Recovered/Resolved]

NARRATIVE: CASE EVENT DATE: 20180914
